FAERS Safety Report 7798924-0 (Version None)
Quarter: 2011Q4

REPORT INFORMATION
  Report Type: 
  Country: None (occurrence: None)
  Receive Date: 20111006
  Receipt Date: 20111003
  Transmission Date: 20120403
  Serious: No
  Sender: FDA-Public Use
  Company Number: US-PFIZER INC-2011106403

PATIENT
  Sex: Male
  Weight: 99.773 kg

DRUGS (1)
  1. CADUET [Suspect]
     Indication: HYPERTENSION
     Dosage: AMLODIPINE BESYLATE 10MG / ATORVASTATIN CALCIUM 20MG, DAILY
     Route: 048
     Dates: start: 20070101

REACTIONS (1)
  - HYPERTENSION [None]
